FAERS Safety Report 24426983 (Version 1)
Quarter: 2024Q4

REPORT INFORMATION
  Report Type: Report from Study
  Country: AR (occurrence: AR)
  Receive Date: 20241011
  Receipt Date: 20241011
  Transmission Date: 20250115
  Serious: Yes (Other)
  Sender: JOHNSON AND JOHNSON
  Company Number: AR-JNJFOC-20241028732

PATIENT
  Age: 64 Year
  Sex: Female
  Weight: 65 kg

DRUGS (1)
  1. SIMPONI [Suspect]
     Active Substance: GOLIMUMAB
     Indication: Rheumatoid arthritis
     Route: 058
     Dates: start: 20240214

REACTIONS (1)
  - Bone cancer [Not Recovered/Not Resolved]

NARRATIVE: CASE EVENT DATE: 20241001
